FAERS Safety Report 7305991-7 (Version None)
Quarter: 2011Q1

REPORT INFORMATION
  Report Type: 
  Country: None (occurrence: None)
  Receive Date: 20110222
  Receipt Date: 20110210
  Transmission Date: 20110831
  Serious: Yes (Other)
  Sender: FDA-Public Use
  Company Number: US-WATSON-2011-01852

PATIENT
  Age: 88 Year
  Sex: Female

DRUGS (2)
  1. METOPROLOL TARTRATE [Suspect]
     Indication: SICK SINUS SYNDROME
     Dosage: 200 MG, DAILY
  2. FLECAINIDE ACETATE [Suspect]
     Indication: SICK SINUS SYNDROME
     Dosage: 100 MG, BID

REACTIONS (10)
  - ELECTROCARDIOGRAM QRS COMPLEX PROLONGED [None]
  - HYPERKALAEMIA [None]
  - DEHYDRATION [None]
  - RENAL FAILURE ACUTE [None]
  - PACEMAKER SYNDROME [None]
  - BLOOD PRESSURE ABNORMAL [None]
  - ELECTROCARDIOGRAM T WAVE PEAKED [None]
  - HEART RATE IRREGULAR [None]
  - VENTRICULAR ARRHYTHMIA [None]
  - DRUG INTERACTION [None]
